FAERS Safety Report 11671800 (Version 1)
Quarter: 2015Q4

REPORT INFORMATION
  Report Type: Report from Study
  Country: US (occurrence: US)
  Receive Date: 20151028
  Receipt Date: 20151028
  Transmission Date: 20160304
  Serious: No
  Sender: FDA-Public Use
  Company Number: PHEH2015US001120

PATIENT
  Age: 12 Year
  Sex: Male

DRUGS (1)
  1. MYFORTIC [Suspect]
     Active Substance: MYCOPHENOLATE SODIUM
     Indication: HEART TRANSPLANT
     Dosage: 360 MG, BID
     Route: 048
     Dates: start: 20091225

REACTIONS (1)
  - Product use issue [Unknown]

NARRATIVE: CASE EVENT DATE: 20091225
